FAERS Safety Report 10376851 (Version 2)
Quarter: 2014Q4

REPORT INFORMATION
  Report Type: Spontaneous
  Country: US (occurrence: US)
  Receive Date: 20140811
  Receipt Date: 20141009
  Transmission Date: 20150528
  Serious: No
  Sender: FDA-Public Use
  Company Number: US-GILEAD-2014-0111197

PATIENT
  Sex: Male

DRUGS (2)
  1. OLYSIO [Concomitant]
     Active Substance: SIMEPREVIR
     Dosage: 50 MG, QD
     Route: 065
     Dates: start: 20140408, end: 20140901
  2. SOVALDI [Suspect]
     Active Substance: SOFOSBUVIR
     Indication: PRODUCT USED FOR UNKNOWN INDICATION
     Route: 048

REACTIONS (3)
  - Treatment noncompliance [Unknown]
  - Product packaging quantity issue [Unknown]
  - Drug dose omission [Unknown]
